FAERS Safety Report 18346418 (Version 4)
Quarter: 2021Q2

REPORT INFORMATION
  Report Type: Report from Study
  Country: US (occurrence: US)
  Receive Date: 20201006
  Receipt Date: 20210421
  Transmission Date: 20210717
  Serious: Yes (Other)
  Sender: FDA-Public Use
  Company Number: US-SHIRE-US202031946

PATIENT
  Age: 64 Year
  Sex: Male
  Weight: 86 kg

DRUGS (13)
  1. OMEGA 3 [FISH OIL] [Concomitant]
     Active Substance: FISH OIL
     Indication: PRODUCT USED FOR UNKNOWN INDICATION
  2. EPINEPHRINE. [Concomitant]
     Active Substance: EPINEPHRINE
     Indication: PRODUCT USED FOR UNKNOWN INDICATION
  3. CHROMIUM PICOLINATE [Concomitant]
     Active Substance: CHROMIUM PICOLINATE
  4. VITAMINS NOS [Concomitant]
     Active Substance: VITAMINS
     Indication: PRODUCT USED FOR UNKNOWN INDICATION
  5. ACETAMINOPHEN. [Concomitant]
     Active Substance: ACETAMINOPHEN
     Indication: PRODUCT USED FOR UNKNOWN INDICATION
  6. DIPHENHYDRAMINE HYDROCHLORIDE. [Concomitant]
     Active Substance: DIPHENHYDRAMINE HYDROCHLORIDE
     Indication: PRODUCT USED FOR UNKNOWN INDICATION
  7. HUMAN NORMAL IMMUNOGLOBULIN; LIQUID [Suspect]
     Active Substance: HUMAN IMMUNOGLOBULIN G
     Indication: SARCOIDOSIS
     Dosage: 90 GRAM, Q2WEEKS
     Route: 042
     Dates: start: 20200925
  8. ASPIRIN (E.C.) [Concomitant]
     Active Substance: ASPIRIN
     Dosage: UNK
  9. PROBIOTIC COMPLEX [Concomitant]
  10. SODIUM CHLORIDE. [Concomitant]
     Active Substance: SODIUM CHLORIDE
     Indication: PRODUCT USED FOR UNKNOWN INDICATION
  11. METHYLPREDNISOLONE. [Concomitant]
     Active Substance: METHYLPREDNISOLONE
     Indication: PRODUCT USED FOR UNKNOWN INDICATION
  12. ALPHA LIPOIC ACID [Concomitant]
     Active Substance: .ALPHA.-LIPOIC ACID
     Indication: PRODUCT USED FOR UNKNOWN INDICATION
  13. L?CARNITINE [LEVOCARNITINE] [Concomitant]
     Active Substance: LEVOCARNITINE

REACTIONS (14)
  - White blood cell count decreased [Unknown]
  - Infusion related reaction [Unknown]
  - Drug ineffective [Unknown]
  - Blood pressure decreased [Unknown]
  - Neuropathy peripheral [Unknown]
  - Condition aggravated [Unknown]
  - Visual impairment [Unknown]
  - Blood pressure increased [Unknown]
  - Feeling abnormal [Unknown]
  - Product use in unapproved indication [Unknown]
  - Diarrhoea [Unknown]
  - Fatigue [Unknown]
  - Ocular discomfort [Unknown]
  - Palpitations [Unknown]

NARRATIVE: CASE EVENT DATE: 20200925
